FAERS Safety Report 19230638 (Version 1)
Quarter: 2021Q2

REPORT INFORMATION
  Report Type: Spontaneous
  Country: US (occurrence: US)
  Receive Date: 20210506
  Receipt Date: 20210506
  Transmission Date: 20210717
  Serious: Yes (Disabling)
  Sender: FDA-Public Use
  Company Number: None

PATIENT
  Age: 45 Year
  Sex: Male
  Weight: 69.75 kg

DRUGS (6)
  1. EMGALITY [Suspect]
     Active Substance: GALCANEZUMAB-GNLM
     Indication: MIGRAINE
     Dosage: ?          QUANTITY:1 INJECTION(S);OTHER FREQUENCY:ONCE A MONTH;?
     Route: 058
     Dates: start: 20210209, end: 20210409
  2. CLONAZEPAM. [Concomitant]
     Active Substance: CLONAZEPAM
  3. ALIVE?MULTIVITAMIN [Concomitant]
  4. TRAMADOL. [Concomitant]
     Active Substance: TRAMADOL
  5. HYDROXYZINE PAMOATE. [Concomitant]
     Active Substance: HYDROXYZINE PAMOATE
  6. ASPIRIN. [Concomitant]
     Active Substance: ASPIRIN

REACTIONS (13)
  - Abnormal dreams [None]
  - Apathy [None]
  - Musculoskeletal discomfort [None]
  - Headache [None]
  - Anxiety [None]
  - Insomnia [None]
  - Helplessness [None]
  - Stress [None]
  - Mental status changes [None]
  - Depression [None]
  - Suicidal ideation [None]
  - Lethargy [None]
  - Head discomfort [None]

NARRATIVE: CASE EVENT DATE: 20210315
